FAERS Safety Report 11013704 (Version 2)
Quarter: 2015Q2

REPORT INFORMATION
  Report Type: Spontaneous
  Country: US (occurrence: US)
  Receive Date: 20150411
  Receipt Date: 20150526
  Transmission Date: 20150821
  Serious: No
  Sender: FDA-Public Use
  Company Number: US-JNJFOC-20130812573

PATIENT

DRUGS (2)
  1. OXYBUTYNIN [Suspect]
     Active Substance: OXYBUTYNIN
     Indication: SALIVARY HYPERSECRETION
     Route: 065
  2. CLONIDINE. [Suspect]
     Active Substance: CLONIDINE
     Indication: SALIVARY HYPERSECRETION
     Dosage: 4 PERIODS
     Route: 048

REACTIONS (2)
  - Dizziness [Unknown]
  - Somnolence [Unknown]
